FAERS Safety Report 7130856-3 (Version None)
Quarter: 2010Q4

REPORT INFORMATION
  Report Type: 
  Country: None (occurrence: None)
  Receive Date: 20101201
  Receipt Date: 20101124
  Transmission Date: 20110411
  Serious: Yes (Hospitalization)
  Sender: FDA-Public Use
  Company Number: US-ROCHE-744712

PATIENT
  Sex: Female

DRUGS (10)
  1. RIBAVIRIN [Suspect]
     Dosage: 600 MG IN MORNING AND 400 MG IN EVENING
     Route: 048
     Dates: start: 20100723
  2. PF-00868554 (HCV POLYMERASE INHIBITOR) [Suspect]
     Indication: HEPATITIS C
     Route: 048
  3. PEGASYS [Concomitant]
     Dates: start: 20100723
  4. LISINOPRIL AND HYDROCHLOROTHIAZIDE [Concomitant]
  5. METFORMIN HCL [Concomitant]
     Dates: start: 20091216
  6. GLIPIZIDE [Concomitant]
     Dates: start: 20091216
  7. PROMETHAZINE [Concomitant]
  8. BENADRYL [Concomitant]
     Dates: start: 20100820
  9. ULTRAM [Concomitant]
     Dates: start: 20100820
  10. XANAX [Concomitant]
     Dates: start: 20100917

REACTIONS (22)
  - ALANINE AMINOTRANSFERASE INCREASED [None]
  - ASPARTATE AMINOTRANSFERASE INCREASED [None]
  - ASTHENIA [None]
  - BLOOD ALKALINE PHOSPHATASE INCREASED [None]
  - BLOOD CHLORIDE DECREASED [None]
  - BLOOD GLUCOSE INCREASED [None]
  - BLOOD POTASSIUM DECREASED [None]
  - BLOOD SODIUM DECREASED [None]
  - BRADYCARDIA [None]
  - CEREBRAL CALCIFICATION [None]
  - CHEST PAIN [None]
  - CYSTITIS NONINFECTIVE [None]
  - DYSPNOEA [None]
  - GASTRIC DISORDER [None]
  - HAEMATOCRIT DECREASED [None]
  - HAEMOGLOBIN DECREASED [None]
  - LOSS OF CONSCIOUSNESS [None]
  - MALAISE [None]
  - PLATELET COUNT DECREASED [None]
  - SKIN BURNING SENSATION [None]
  - VERTIGO [None]
  - WHITE BLOOD CELL COUNT DECREASED [None]
